FAERS Safety Report 9649076 (Version 1)
Quarter: 2013Q4

REPORT INFORMATION
  Report Type: Spontaneous
  Country: DE (occurrence: DE)
  Receive Date: 20131028
  Receipt Date: 20131028
  Transmission Date: 20140711
  Serious: Yes (Hospitalization)
  Sender: FDA-Public Use
  Company Number: GXKR2013DE003401

PATIENT
  Sex: 0

DRUGS (9)
  1. PARACETAMOL [Suspect]
     Indication: PROCEDURAL PAIN
     Dosage: DAILY DOSE: 2000 MG MILLGRAM(S) EVERY DAYS
     Route: 048
     Dates: start: 20131014, end: 20131014
  2. NOVALGIN//METAMIZOLE SODIUM [Suspect]
     Indication: PROCEDURAL PAIN
     Dosage: 1 G, UNK
     Route: 042
     Dates: start: 20131014, end: 20131014
  3. NOVALGIN//METAMIZOLE SODIUM [Suspect]
     Indication: PROCEDURAL PAIN
     Dosage: 500 MG, UNK
     Route: 048
     Dates: start: 20131014, end: 20131014
  4. PANTOZOL [Suspect]
     Indication: GASTRITIS PROPHYLAXIS
     Dosage: DAILY DOSE: 20 MG MILLGRAM(S) EVERY DAYS
     Route: 048
     Dates: start: 20131014, end: 20131014
  5. DOLO-DOBENDAN [Concomitant]
     Indication: OROPHARYNGEAL PAIN
     Dosage: UNK, ONCE/SINGLE
     Route: 048
     Dates: start: 20131014, end: 20131014
  6. TRANXILIUM [Concomitant]
     Indication: PREMEDICATION
     Dosage: UNK, ONCE/SINGLE
     Route: 048
     Dates: start: 20131014, end: 20131014
  7. DIPIDOLOR [Concomitant]
     Indication: ANALGESIC THERAPY
     Dosage: UNK, PRN
     Route: 058
     Dates: start: 20131014
  8. DIPIDOLOR [Concomitant]
     Dosage: BEI BEDARF
     Route: 042
     Dates: start: 20131014
  9. DIPIDOLOR [Concomitant]
     Indication: ANALGESIC THERAPY
     Dosage: UNK, PRN
     Route: 042
     Dates: start: 20131014

REACTIONS (1)
  - Agranulocytosis [Not Recovered/Not Resolved]
